FAERS Safety Report 23563636 (Version 1)
Quarter: 2024Q1

REPORT INFORMATION
  Report Type: Report from Study
  Country: TW (occurrence: TW)
  Receive Date: 20240226
  Receipt Date: 20240226
  Transmission Date: 20240409
  Serious: Yes (Hospitalization)
  Sender: FDA-Public Use
  Company Number: TW-BoehringerIngelheim-2024-BI-010406

PATIENT
  Age: 41 Year
  Sex: Female

DRUGS (1)
  1. GILOTRIF [Suspect]
     Active Substance: AFATINIB
     Indication: Lung adenocarcinoma
     Route: 048
     Dates: start: 20231006

REACTIONS (1)
  - Lung operation [Not Recovered/Not Resolved]

NARRATIVE: CASE EVENT DATE: 20240226
